FAERS Safety Report 13397762 (Version 1)
Quarter: 2017Q2

REPORT INFORMATION
  Report Type: Spontaneous
  Country: FR (occurrence: FR)
  Receive Date: 20170403
  Receipt Date: 20170403
  Transmission Date: 20170830
  Serious: Yes (Hospitalization)
  Sender: FDA-Public Use
  Company Number: FR-PFIZER INC-2017138518

PATIENT
  Age: 45 Year
  Sex: Female

DRUGS (5)
  1. XYZALL [Concomitant]
     Active Substance: LEVOCETIRIZINE DIHYDROCHLORIDE
  2. AUGMENTIN [Suspect]
     Active Substance: AMOXICILLIN\CLAVULANATE POTASSIUM
     Indication: PNEUMONIA
     Dosage: 1 G, 3X/DAY
     Dates: start: 20170204
  3. ATROVENT [Suspect]
     Active Substance: IPRATROPIUM BROMIDE
     Indication: RESPIRATORY DISTRESS
     Dosage: 0.5 MG, 3X/DAY
     Route: 055
     Dates: start: 20170204
  4. SOLU-MEDROL [Suspect]
     Active Substance: METHYLPREDNISOLONE SODIUM SUCCINATE
     Indication: RESPIRATORY DISTRESS
     Dosage: UNK
     Route: 042
     Dates: start: 20170204
  5. BRICANYL [Suspect]
     Active Substance: TERBUTALINE SULFATE
     Indication: RESPIRATORY DISTRESS
     Dosage: UNK
     Route: 055
     Dates: start: 20170204

REACTIONS (2)
  - Tachycardia [Recovered/Resolved]
  - Lactic acidosis [Recovered/Resolved]

NARRATIVE: CASE EVENT DATE: 20170205
